FAERS Safety Report 10038033 (Version 1)
Quarter: 2014Q1

REPORT INFORMATION
  Report Type: Spontaneous
  Country: US (occurrence: None)
  Receive Date: 20140306
  Receipt Date: 20140306
  Transmission Date: 20141002
  Serious: Yes (Hospitalization, Other)
  Sender: FDA-Public Use
  Company Number: 163-21880-12120771

PATIENT
  Age: 68 Year
  Sex: Female

DRUGS (1)
  1. REVLIMID [Suspect]
     Indication: PLASMA CELL MYELOMA
     Dosage: 10 MG, 1 IN 1 D, PO JUN/ 2012 - UNKNOWN??????????????????????????????????
     Route: 048
     Dates: start: 201206

REACTIONS (3)
  - Renal failure [None]
  - Performance status decreased [None]
  - Infection [None]
